FAERS Safety Report 7224547-8 (Version None)
Quarter: 2011Q1

REPORT INFORMATION
  Report Type: 
  Country: None (occurrence: None)
  Receive Date: 20110103
  Receipt Date: 20101220
  Transmission Date: 20110831
  Serious: Yes (Hospitalization)
  Sender: FDA-Public Use
  Company Number: UTC-003624

PATIENT
  Age: 47 Year
  Sex: Female
  Weight: 71 kg

DRUGS (4)
  1. TYVASO [Suspect]
     Indication: HYPERTENSION
     Dosage: 72 MCG (18 MCG, 4 IN D), INHALATION
     Route: 055
     Dates: start: 20100602
  2. REVATIO [Concomitant]
  3. DIURETICS (DIURETICS) [Concomitant]
  4. COUMADIN [Concomitant]

REACTIONS (6)
  - CONDITION AGGRAVATED [None]
  - TOOTH LOSS [None]
  - RHINORRHOEA [None]
  - OEDEMA [None]
  - DIARRHOEA [None]
  - COUGH [None]
